FAERS Safety Report 22087117 (Version 1)
Quarter: 2023Q1

REPORT INFORMATION
  Report Type: Spontaneous
  Country: CN (occurrence: CN)
  Receive Date: 20230313
  Receipt Date: 20230313
  Transmission Date: 20230418
  Serious: Yes (Hospitalization)
  Sender: FDA-Public Use
  Company Number: CN-002147023-NVSC2023CN051248

PATIENT
  Age: 10 Year
  Sex: Female
  Weight: 35.9 kg

DRUGS (2)
  1. MYFORTIC [Suspect]
     Active Substance: MYCOPHENOLATE SODIUM
     Indication: End stage renal disease
     Dosage: 720 MG, BID
     Route: 048
     Dates: start: 20230203, end: 20230204
  2. TACROLIMUS [Concomitant]
     Active Substance: TACROLIMUS
     Indication: End stage renal disease
     Dosage: 1.50 MG, BID
     Route: 048
     Dates: start: 20230204, end: 20230206

REACTIONS (5)
  - Myelosuppression [Recovering/Resolving]
  - Concomitant disease progression [Recovering/Resolving]
  - Pallor [Unknown]
  - Anaemia [Unknown]
  - Platelet count decreased [Unknown]

NARRATIVE: CASE EVENT DATE: 20230204
